FAERS Safety Report 9269902 (Version 2)
Quarter: 2013Q4

REPORT INFORMATION
  Report Type: Spontaneous
  Country: RU (occurrence: RU)
  Receive Date: 20130503
  Receipt Date: 20131028
  Transmission Date: 20140711
  Serious: Yes (Other)
  Sender: FDA-Public Use
  Company Number: RU-SANOFI-AVENTIS-2013SA042864

PATIENT
  Age: 60 Year
  Sex: Male

DRUGS (5)
  1. TRENTAL [Suspect]
     Indication: VENOUS INSUFFICIENCY
     Route: 042
     Dates: start: 2011, end: 2011
  2. TRENTAL [Suspect]
     Indication: VENOUS INSUFFICIENCY
     Route: 048
     Dates: start: 2012, end: 2012
  3. OMNIC [Concomitant]
     Dosage: MODIFIED RELEASE CAPSULE
     Route: 048
  4. NEUROMULTIVIT [Concomitant]
     Route: 048
  5. ACTOVEGIN 10%-NACL [Concomitant]

REACTIONS (3)
  - Glaucoma [Not Recovered/Not Resolved]
  - Visual impairment [Not Recovered/Not Resolved]
  - Off label use [Unknown]
